FAERS Safety Report 4551260-8 (Version None)
Quarter: 2005Q1

REPORT INFORMATION
  Report Type: 
  Country: None (occurrence: None)
  Receive Date: 20050106
  Receipt Date: 20041222
  Transmission Date: 20050727
  Serious: Yes (Hospitalization)
  Sender: FDA-Public Use
  Company Number: 8008083

PATIENT
  Age: 52 Year
  Sex: Female

DRUGS (5)
  1. KEPPRA [Suspect]
     Indication: EPILEPSY
     Dosage: 500MG/D PO
     Route: 048
     Dates: start: 20041022, end: 20041028
  2. KEPPRA [Suspect]
     Indication: EPILEPSY
     Dosage: 1000MG/D PO
     Route: 048
     Dates: start: 20041029, end: 20041108
  3. CARBAMAZEPINE [Suspect]
     Indication: EPILEPSY
     Dosage: 400MG 2/D PO
     Route: 048
     Dates: start: 20011022, end: 20041107
  4. CARBAMAZEPINE [Suspect]
     Indication: EPILEPSY
     Dosage: 200MG 2/D PO
     Route: 048
     Dates: start: 20041108
  5. VALPROATE SODIUM [Concomitant]

REACTIONS (9)
  - ANTICONVULSANT DRUG LEVEL INCREASED [None]
  - BICYTOPENIA [None]
  - BONE MARROW DEPRESSION [None]
  - CONVULSION [None]
  - HYPOPLASTIC ANAEMIA [None]
  - LETHARGY [None]
  - NAUSEA [None]
  - SOMNOLENCE [None]
  - VOMITING [None]
